FAERS Safety Report 6267777-4 (Version None)
Quarter: 2009Q3

REPORT INFORMATION
  Report Type: 
  Country: None (occurrence: None)
  Receive Date: 20090714
  Receipt Date: 20090629
  Transmission Date: 20100115
  Serious: Yes (Other)
  Sender: FDA-Public Use
  Company Number: US-JNJCH-2009019073

PATIENT
  Age: 22 Month
  Sex: Male

DRUGS (2)
  1. BENADRYL [Suspect]
     Indication: ACCIDENTAL EXPOSURE
     Route: 048
  2. ACETAMINOPHEN [Suspect]
     Indication: ACCIDENTAL EXPOSURE
     Route: 048

REACTIONS (2)
  - OVERDOSE [None]
  - WRONG DRUG ADMINISTERED [None]
